FAERS Safety Report 5276320-8 (Version None)
Quarter: 2007Q1

REPORT INFORMATION
  Report Type: 
  Country: None (occurrence: None)
  Receive Date: 20070326
  Receipt Date: 20070314
  Transmission Date: 20070707
  Serious: Yes (Life-Threatening)
  Sender: FDA-Public Use
  Company Number: FR-PFIZER INC-2007020370

PATIENT
  Age: 43 Year
  Sex: Female
  Weight: 58 kg

DRUGS (4)
  1. SOLU-MEDROL [Suspect]
     Indication: BASEDOW'S DISEASE
     Route: 042
     Dates: start: 20070219, end: 20070219
  2. LEVOTHYROXINE SODIUM [Concomitant]
  3. NEO-MERCAZOLE TAB [Concomitant]
  4. DETENSIEL [Concomitant]

REACTIONS (1)
  - ANAPHYLACTIC SHOCK [None]
